FAERS Safety Report 9242501 (Version 3)
Quarter: 2014Q1

REPORT INFORMATION
  Report Type: Spontaneous
  Country: JP (occurrence: JP)
  Receive Date: 20130419
  Receipt Date: 20140116
  Transmission Date: 20141002
  Serious: Yes (Death, Other)
  Sender: FDA-Public Use
  Company Number: JP-MILLENNIUM PHARMACEUTICALS, INC.-2012-08657

PATIENT
  Sex: 0

DRUGS (6)
  1. VELCADE [Suspect]
     Indication: PLASMA CELL MYELOMA
     Dosage: 1.9 MG/M2
     Route: 042
     Dates: start: 201007, end: 20110902
  2. ITRACONAZOLE [Suspect]
     Dosage: 200 MG, QD
     Route: 048
     Dates: start: 201007
  3. DEXAMETHASON [Suspect]
     Indication: PLASMA CELL MYELOMA
     Dosage: 20 MG, QD, ON DAYS 1, 2, 4, 5, 8, 9, 11 AND 12
     Route: 048
     Dates: start: 201007, end: 20110903
  4. DEXAMETHASON [Suspect]
     Dosage: UNK
     Dates: start: 20080401, end: 201006
  5. DOXORUBICIN [Suspect]
     Indication: PLASMA CELL MYELOMA
     Dosage: UNK
     Dates: start: 20070101
  6. VINCRISTINE [Suspect]
     Dosage: UNK
     Dates: start: 20070101

REACTIONS (4)
  - Drug interaction [Unknown]
  - Platelet count decreased [Recovered/Resolved]
  - Neuropathy peripheral [Unknown]
  - Plasma cell myeloma [Fatal]
